FAERS Safety Report 11693306 (Version 1)
Quarter: 2015Q4

REPORT INFORMATION
  Report Type: Spontaneous
  Country: US (occurrence: None)
  Receive Date: 20151102
  Receipt Date: 20151102
  Transmission Date: 20160304
  Serious: Yes (Other)
  Sender: FDA-Public Use
  Company Number: None

PATIENT
  Age: 59 Year
  Sex: Female
  Weight: 58.97 kg

DRUGS (10)
  1. VITAMIN C [Concomitant]
     Active Substance: ASCORBIC ACID
  2. VITAMIN D [Concomitant]
     Active Substance: CHOLECALCIFEROL
  3. IRON [Concomitant]
     Active Substance: IRON
  4. L CARNITINE [Concomitant]
     Active Substance: LEVOCARNITINE
  5. GABAPENTIN. [Concomitant]
     Active Substance: GABAPENTIN
  6. LAMICTAL [Concomitant]
     Active Substance: LAMOTRIGINE
  7. ATIVAN [Concomitant]
     Active Substance: LORAZEPAM
  8. PRAMIPREXOLE DI HCL [Concomitant]
     Active Substance: PRAMIPEXOLE DIHYDROCHLORIDE
  9. AMANTADINE 100MG [Suspect]
     Active Substance: AMANTADINE
     Indication: PARKINSON^S DISEASE
     Dosage: 1 PILL
     Route: 048
     Dates: start: 20150822, end: 20151015
  10. ACYTL [Concomitant]

REACTIONS (5)
  - Peripheral swelling [None]
  - Contusion [None]
  - Erythema [None]
  - Feeling hot [None]
  - Joint swelling [None]

NARRATIVE: CASE EVENT DATE: 20151008
